FAERS Safety Report 5939393-2 (Version None)
Quarter: 2008Q4

REPORT INFORMATION
  Report Type: 
  Country: None (occurrence: None)
  Receive Date: 20081103
  Receipt Date: 20081022
  Transmission Date: 20090506
  Serious: Yes (Hospitalization)
  Sender: FDA-Public Use
  Company Number: GB-PFIZER INC-2008089985

PATIENT
  Age: 56 Year
  Sex: Male

DRUGS (8)
  1. GABAPENTIN [Suspect]
  2. FENTANYL [Suspect]
     Indication: PAIN
     Route: 048
  3. HALOPERIDOL [Suspect]
  4. MORPHINE [Suspect]
     Indication: ANALGESIA
  5. ACETAMINOPHEN [Suspect]
     Route: 048
  6. HYDROMORPHONE HCL [Suspect]
     Indication: ANALGESIA
  7. OXYCODONE HCL [Concomitant]
  8. ALFENTANIL [Concomitant]
     Route: 058

REACTIONS (18)
  - ABDOMINAL PAIN [None]
  - AGGRESSION [None]
  - AGITATION [None]
  - BACK PAIN [None]
  - CONDITION AGGRAVATED [None]
  - DRUG INEFFECTIVE [None]
  - DRUG TOXICITY [None]
  - DRUG WITHDRAWAL SYNDROME [None]
  - FEELING ABNORMAL [None]
  - HYPERHIDROSIS [None]
  - HYPERVENTILATION [None]
  - INFECTION [None]
  - MYALGIA [None]
  - PILOERECTION [None]
  - RENAL IMPAIRMENT [None]
  - RESTLESSNESS [None]
  - SLEEP DISORDER [None]
  - TACHYCARDIA [None]
